FAERS Safety Report 9214918 (Version 1)
Quarter: 2013Q2

REPORT INFORMATION
  Report Type: Spontaneous
  Country: US (occurrence: US)
  Receive Date: 20130405
  Receipt Date: 20130405
  Transmission Date: 20140414
  Serious: No
  Sender: FDA-Public Use
  Company Number: US-B.I. PHARMACEUTICALS,INC./RIDGEFIELD-2013-BI-08503BP

PATIENT
  Sex: Female
  Weight: 60 kg

DRUGS (13)
  1. MICARDIS HCT TABLETS [Suspect]
     Indication: HYPERTENSION
     Route: 048
     Dates: start: 2010
  2. PRADAXA [Suspect]
     Indication: ATRIAL FIBRILLATION
     Dosage: 300 MG
     Route: 048
     Dates: start: 2012
  3. NASONEX [Concomitant]
     Indication: SEASONAL ALLERGY
     Route: 045
  4. LASIX [Concomitant]
     Dosage: 40 MG
     Route: 048
  5. VYTORIN [Concomitant]
     Indication: BLOOD CHOLESTEROL INCREASED
     Route: 048
  6. SOTALOL [Concomitant]
     Indication: HEART RATE IRREGULAR
     Dosage: 160 MG
     Route: 048
  7. AMBIEN [Concomitant]
     Route: 048
  8. POTASSIUM [Concomitant]
     Dosage: 20 MEQ
     Route: 048
  9. ALLOPURINOL [Concomitant]
     Indication: GOUT
     Dosage: 200 MG
     Route: 048
  10. LEVOTHYROXINE [Concomitant]
     Indication: HYPOTHYROIDISM
     Dosage: 0.88 MG
     Route: 048
  11. NEXIUM [Concomitant]
     Indication: GASTROOESOPHAGEAL REFLUX DISEASE
     Dosage: 40 MG
     Route: 048
  12. VITAMIN D [Concomitant]
     Dosage: 400 U
     Route: 048
  13. BENADRYL [Concomitant]
     Indication: SEASONAL ALLERGY
     Route: 048

REACTIONS (1)
  - Heart rate increased [Not Recovered/Not Resolved]
